FAERS Safety Report 6899051-7 (Version None)
Quarter: 2010Q3

REPORT INFORMATION
  Report Type: 
  Country: None (occurrence: None)
  Receive Date: 20100802
  Receipt Date: 20080103
  Transmission Date: 20110219
  Serious: No
  Sender: FDA-Public Use
  Company Number: US-PFIZER INC-2007093893

PATIENT
  Sex: Female
  Weight: 55.3 kg

DRUGS (8)
  1. LYRICA [Suspect]
     Indication: NEURALGIA
     Route: 048
     Dates: start: 20071001
  2. NEURONTIN [Suspect]
     Indication: PAIN
     Dates: start: 20010101
  3. NEURONTIN [Suspect]
     Indication: NEURALGIA
  4. GABAPENTIN [Suspect]
     Indication: NEUROPATHY PERIPHERAL
  5. GABAPENTIN [Suspect]
     Indication: NEURALGIA
  6. ZETIA [Concomitant]
  7. VITAMINS [Concomitant]
  8. CALCIUM [Concomitant]

REACTIONS (5)
  - DRUG INEFFECTIVE [None]
  - MALAISE [None]
  - NEUROPATHY PERIPHERAL [None]
  - VOMITING [None]
  - WEIGHT INCREASED [None]
